FAERS Safety Report 4558669-7 (Version None)
Quarter: 2005Q1

REPORT INFORMATION
  Report Type: 
  Country: None (occurrence: None)
  Receive Date: 20050121
  Receipt Date: 20050121
  Transmission Date: 20050727
  Serious: Yes (Other)
  Sender: FDA-Public Use
  Company Number: None

PATIENT
  Age: 47 Year
  Sex: Female
  Weight: 106.5953 kg

DRUGS (2)
  1. SEROQUEL [Suspect]
     Indication: DEPRESSION
     Dosage: 300MG  AT BEDTIME   ORAL
     Route: 048
     Dates: start: 20040413, end: 20040415
  2. SERZONE [Suspect]
     Indication: DEPRESSION
     Dosage: 200MG   TWICE DAILY  ORAL
     Route: 048
     Dates: start: 20040413, end: 20040415

REACTIONS (1)
  - MEDICATION ERROR [None]
